FAERS Safety Report 9125187 (Version 1)
Quarter: 2013Q1

REPORT INFORMATION
  Report Type: Spontaneous
  Country: BR (occurrence: BR)
  Receive Date: 20130227
  Receipt Date: 20130227
  Transmission Date: 20140127
  Serious: Yes (Other)
  Sender: FDA-Public Use
  Company Number: BR-009507513-1302BRA009307

PATIENT
  Age: 5 Year
  Sex: Female
  Weight: 21 kg

DRUGS (1)
  1. COPPERTONE BABIES [Suspect]
     Indication: PROPHYLAXIS AGAINST SOLAR RADIATION
     Dosage: UNK
     Route: 061
     Dates: start: 20130209, end: 20130209

REACTIONS (1)
  - Hypersensitivity [Recovered/Resolved]
